FAERS Safety Report 22192993 (Version 1)
Quarter: 2023Q2

REPORT INFORMATION
  Report Type: Spontaneous
  Country: US (occurrence: US)
  Receive Date: 20230410
  Receipt Date: 20230410
  Transmission Date: 20230721
  Serious: No
  Sender: FDA-Public Use
  Company Number: US-THEA-2022001929

PATIENT
  Sex: Male

DRUGS (1)
  1. ZIOPTAN [Suspect]
     Active Substance: TAFLUPROST
     Indication: Eye swelling
     Dosage: LEFT EYE AT BEDTIME
     Route: 047
     Dates: start: 202205, end: 20220909

REACTIONS (2)
  - Off label use [Unknown]
  - Eye swelling [Unknown]
